FAERS Safety Report 5340420-4 (Version None)
Quarter: 2007Q2

REPORT INFORMATION
  Report Type: 
  Country: None (occurrence: None)
  Receive Date: 20070531
  Receipt Date: 20070518
  Transmission Date: 20071010
  Serious: Yes (Hospitalization, Other)
  Sender: FDA-Public Use
  Company Number: JP-PFIZER INC-2007039468

PATIENT
  Age: 12 Month

DRUGS (8)
  1. ZITHROMAC [Suspect]
     Indication: RESPIRATORY TRACT INFECTION
     Dosage: DAILY DOSE:100MG
     Route: 048
     Dates: start: 20070512, end: 20070514
  2. ASVERIN [Concomitant]
     Route: 048
  3. SUPDEL [Concomitant]
     Route: 048
     Dates: start: 20070420
  4. MUCOSOLVAN [Concomitant]
     Route: 048
     Dates: start: 20070420
  5. ALIMEZINE [Concomitant]
     Route: 048
     Dates: start: 20070420
  6. HOKUNALIN [Concomitant]
     Route: 062
     Dates: start: 20070420
  7. CEFDITOREN PIVOXIL [Concomitant]
     Route: 048
     Dates: start: 20070423
  8. BIOFERMIN [Concomitant]
     Route: 048
     Dates: start: 20070423

REACTIONS (3)
  - OEDEMA [None]
  - PYREXIA [None]
  - RASH [None]
